FAERS Safety Report 18591427 (Version 1)
Quarter: 2020Q4

REPORT INFORMATION
  Report Type: Spontaneous
  Country: DE (occurrence: DE)
  Receive Date: 20201208
  Receipt Date: 20201208
  Transmission Date: 20210114
  Serious: Yes (Other)
  Sender: FDA-Public Use
  Company Number: DE-SA-2020SA349643

PATIENT

DRUGS (2)
  1. FEXOFENADINE HYDROCHLORIDE. [Suspect]
     Active Substance: FEXOFENADINE HYDROCHLORIDE
     Indication: ANGIOEDEMA
     Dosage: 180 MG, QD, WITH QT TIME ECG, EXTENSION, LATER REDUCTION. IF YOU ARE DIZZY, ONLY 1-2 TAB
     Route: 048
     Dates: start: 20150701, end: 2020
  2. FEXOFENADINE HYDROCHLORIDE. [Suspect]
     Active Substance: FEXOFENADINE HYDROCHLORIDE
     Indication: URTICARIA CHRONIC
     Dosage: UNK UNK, PRN, WITH QT TIME ECG, EXTENSION, LATER REDUCTION. IF YOU ARE DIZZY, ONLY 1-2 TAB
     Route: 048
     Dates: start: 2020, end: 20200301

REACTIONS (3)
  - Dizziness postural [Recovered/Resolved]
  - Electrocardiogram QT prolonged [Unknown]
  - Diplopia [Recovered/Resolved]

NARRATIVE: CASE EVENT DATE: 2016
